FAERS Safety Report 6039282-1 (Version None)
Quarter: 2009Q1

REPORT INFORMATION
  Report Type: 
  Country: None (occurrence: None)
  Receive Date: 20090115
  Receipt Date: 20090113
  Transmission Date: 20090719
  Serious: Yes (Death, Hospitalization, Other)
  Sender: FDA-Public Use
  Company Number: PHHY2008MX25208

PATIENT
  Age: 91 Year
  Sex: Male

DRUGS (1)
  1. EXFORGE [Suspect]
     Indication: HYPERTENSION
     Dosage: 1 TABLET (160 MG VALSARTAN/5 MG AMLODIPINE) DAILY
     Dates: start: 20080301, end: 20080801

REACTIONS (6)
  - CEREBRAL INFARCTION [None]
  - DEEP VEIN THROMBOSIS [None]
  - DYSPHAGIA [None]
  - FACIAL PALSY [None]
  - MYASTHENIA GRAVIS [None]
  - RESPIRATORY ARREST [None]
